FAERS Safety Report 5764528-4 (Version None)
Quarter: 2008Q2

REPORT INFORMATION
  Report Type: 
  Country: None (occurrence: None)
  Receive Date: 20080610
  Receipt Date: 20080604
  Transmission Date: 20081010
  Serious: Yes (Hospitalization)
  Sender: FDA-Public Use
  Company Number: GB-ALLERGAN-0806702US

PATIENT
  Sex: Female

DRUGS (4)
  1. BOTOX [Suspect]
     Indication: HYPERTONIC BLADDER
     Dosage: 200 UNITS, SINGLE
     Dates: start: 20070330, end: 20070330
  2. BLINDED BOTULINUM TOXIN TYPE A - GENERAL [Suspect]
     Indication: HYPERTONIC BLADDER
     Dosage: 200 UNITS, SINGLE
     Dates: start: 20070330, end: 20070330
  3. BOTOX [Suspect]
     Dosage: 200 UNITS, SINGLE
     Dates: start: 20080311, end: 20080311
  4. BLINDED BOTULINUM TOXIN TYPE A - GENERAL [Suspect]
     Dosage: 200 UNITS, SINGLE
     Dates: start: 20080311, end: 20080311

REACTIONS (3)
  - SUPRAPUBIC PAIN [None]
  - URINARY BLADDER HAEMORRHAGE [None]
  - URINARY TRACT INFECTION [None]
